FAERS Safety Report 6425946-4 (Version None)
Quarter: 2009Q4

REPORT INFORMATION
  Report Type: 
  Country: None (occurrence: None)
  Receive Date: 20091103
  Receipt Date: 20091103
  Transmission Date: 20100525
  Serious: Yes (Other)
  Sender: FDA-Public Use
  Company Number: None

PATIENT
  Sex: Female
  Weight: 19.0511 kg

DRUGS (1)
  1. TAMIFLU [Suspect]
     Indication: INFLUENZA
     Dosage: 3 ML 2 TIMES/FOR 5 DAYS, PO
     Route: 048
     Dates: start: 20091030, end: 20091031

REACTIONS (6)
  - EYE SWELLING [None]
  - OEDEMA PERIPHERAL [None]
  - PAIN [None]
  - PYREXIA [None]
  - RASH PAPULAR [None]
  - URTICARIA [None]
